FAERS Safety Report 11200629 (Version 2)
Quarter: 2015Q3

REPORT INFORMATION
  Report Type: Spontaneous
  Country: US (occurrence: US)
  Receive Date: 20150618
  Receipt Date: 20150923
  Transmission Date: 20151125
  Serious: No
  Sender: FDA-Public Use
  Company Number: US-CELGENEUS-USA-2015055370

PATIENT
  Age: 33 Year
  Sex: Male

DRUGS (4)
  1. TRIAMCINOLONE [Concomitant]
     Active Substance: TRIAMCINOLONE
     Route: 065
  2. TRIAMCINOLONE [Concomitant]
     Active Substance: TRIAMCINOLONE
     Indication: PSORIASIS
     Route: 061
     Dates: start: 20150317
  3. OTEZLA [Suspect]
     Active Substance: APREMILAST
     Route: 048
     Dates: start: 20150511
  4. OTEZLA [Suspect]
     Active Substance: APREMILAST
     Indication: PSORIASIS
     Route: 048
     Dates: start: 20150424

REACTIONS (1)
  - Psoriasis [Unknown]

NARRATIVE: CASE EVENT DATE: 20150522
